FAERS Safety Report 4627008-5 (Version None)
Quarter: 2005Q1

REPORT INFORMATION
  Report Type: 
  Country: None (occurrence: None)
  Receive Date: 20050331
  Receipt Date: 20050321
  Transmission Date: 20050727
  Serious: Yes (Hospitalization)
  Sender: FDA-Public Use
  Company Number: 2004UW25576

PATIENT
  Age: 40 Year
  Sex: Male
  Weight: 116.1208 kg

DRUGS (3)
  1. SEROQUEL [Suspect]
     Indication: SCHIZOPHRENIA
     Dosage: 200 MG BID PO
     Route: 048
     Dates: start: 20041209, end: 20041215
  2. ALBUTEROL [Concomitant]
  3. LOPRESSOR [Concomitant]

REACTIONS (20)
  - ASTHENIA [None]
  - ATRIOVENTRICULAR BLOCK FIRST DEGREE [None]
  - BLOOD GLUCOSE INCREASED [None]
  - COUGH [None]
  - DISORIENTATION [None]
  - DIZZINESS [None]
  - DRUG ABUSER [None]
  - ECHOCARDIOGRAM ABNORMAL [None]
  - ELECTROCARDIOGRAM QT CORRECTED INTERVAL PROLONGED [None]
  - FALL [None]
  - HYPERHIDROSIS [None]
  - LOWER RESPIRATORY TRACT INFECTION [None]
  - MEAN CELL HAEMOGLOBIN DECREASED [None]
  - RED BLOOD CELL COUNT DECREASED [None]
  - SINUS BRADYCARDIA [None]
  - SOMNOLENCE [None]
  - TOXICOLOGIC TEST ABNORMAL [None]
  - TRICUSPID VALVE INCOMPETENCE [None]
  - VENTRICULAR HYPERTROPHY [None]
  - WHEEZING [None]
